FAERS Safety Report 4961618-0 (Version None)
Quarter: 2006Q1

REPORT INFORMATION
  Report Type: 
  Country: None (occurrence: None)
  Receive Date: 20060329
  Receipt Date: 20060315
  Transmission Date: 20060701
  Serious: Yes (Death, Life-Threatening, Hospitalization)
  Sender: FDA-Public Use
  Company Number: 2006P1000213

PATIENT
  Age: 76 Year
  Sex: Male

DRUGS (19)
  1. NICARDIPINE HYDROCHLORIDE [Suspect]
     Dosage: 1.5 GM; QD; IV
     Route: 042
     Dates: start: 20050314, end: 20050316
  2. TARGOCID [Suspect]
     Indication: PNEUMONIA STAPHYLOCOCCAL
     Dosage: 400 MG; QD; IVDRP
     Route: 041
     Dates: start: 20050314, end: 20050322
  3. PANTOL (DEXPANTHENOL) [Suspect]
     Dosage: 1500 MG; QD; IV
     Route: 042
     Dates: start: 20050310, end: 20050321
  4. ELASPOL (SIVELESTAT) [Suspect]
     Dosage: 300 MG; QD; IV
     Route: 042
     Dates: start: 20050308, end: 20050322
  5. SIGMART (NICORANDIL) [Suspect]
     Dosage: 18 MG; QD; IV
     Route: 042
     Dates: start: 20050308, end: 20050322
  6. XYLOCAINE [Suspect]
     Dosage: 70 MG; QH; IVDRP
     Route: 041
     Dates: start: 20050313, end: 20050322
  7. SOLU-MEDROL [Suspect]
     Dosage: 500 MG; QD; IV
     Route: 042
     Dates: start: 20050313, end: 20050320
  8. BISOLVON (BROMHEXINE HYDROCHLORIDE) [Suspect]
     Dosage: TID; IV
     Route: 042
     Dates: start: 20050309, end: 20050322
  9. LASIX [Suspect]
     Dosage: 20 MG; QD; IV
     Route: 042
     Dates: start: 20050318, end: 20050320
  10. ISOSORBIDE MONONITRATE [Suspect]
     Dosage: 40 MG; QD; PO
     Route: 048
     Dates: start: 20050316, end: 20050318
  11. LACTULOSE [Suspect]
     Dosage: 60 ML; TID; ORAL
     Route: 048
     Dates: start: 20050316, end: 20050321
  12. PREDNISONE TAB [Suspect]
     Dosage: 80 MG; X1; IVDRP
     Route: 041
     Dates: start: 20050321, end: 20050321
  13. FUNGUARD (MICAFUNGIN SODIUM) [Suspect]
     Dosage: 600 MG; X1; IVDRP
     Route: 041
     Dates: start: 20050308, end: 20050322
  14. CIPROFLOXACIN HCL [Concomitant]
  15. MANNITOL [Concomitant]
  16. CIBENOL [Concomitant]
  17. RYTHMODAN [Concomitant]
  18. NORADRENALINE [Concomitant]
  19. INOVAN [Concomitant]

REACTIONS (7)
  - ATRIAL FIBRILLATION [None]
  - DISSEMINATED INTRAVASCULAR COAGULATION [None]
  - HEPATIC FUNCTION ABNORMAL [None]
  - INTESTINAL PERFORATION [None]
  - PERITONITIS [None]
  - RENAL IMPAIRMENT [None]
  - SEPTIC SHOCK [None]
